FAERS Safety Report 20020932 (Version 1)
Quarter: 2021Q4

REPORT INFORMATION
  Report Type: Report from Study
  Country: IT (occurrence: IT)
  Receive Date: 20211101
  Receipt Date: 20211101
  Transmission Date: 20220303
  Serious: Yes (Hospitalization)
  Sender: FDA-Public Use
  Company Number: IT-JNJFOC-20210754369

PATIENT
  Age: 74 Year
  Sex: Female

DRUGS (15)
  1. PREDNISONE [Suspect]
     Active Substance: PREDNISONE
     Indication: Product used for unknown indication
     Dosage: 100 MILLIGRAM
     Route: 065
     Dates: start: 20201217, end: 20210215
  2. PREDNISONE [Suspect]
     Active Substance: PREDNISONE
     Dosage: 100 MILLIGRAM
     Route: 065
     Dates: start: 20210319
  3. VELCADE [Suspect]
     Active Substance: BORTEZOMIB
     Indication: Product used for unknown indication
     Dosage: 2.09 MILLIGRAM
     Route: 065
     Dates: start: 20201217, end: 20210215
  4. VELCADE [Suspect]
     Active Substance: BORTEZOMIB
     Dosage: 2.09 MILLIGRAM
     Route: 065
     Dates: start: 20210319
  5. MELPHALAN [Suspect]
     Active Substance: MELPHALAN
     Indication: Product used for unknown indication
     Dosage: 14 MILLIGRAM
     Route: 065
     Dates: start: 20210205, end: 20210215
  6. MELPHALAN [Suspect]
     Active Substance: MELPHALAN
     Dosage: 14 MILLIGRAM
     Route: 065
     Dates: start: 20210319
  7. OMEPRAZOL                          /00661201/ [Concomitant]
     Dosage: UNK, ONGOING
     Route: 065
  8. INSULIN GLARGINE [Concomitant]
     Active Substance: INSULIN GLARGINE
     Dosage: UNK, ONGOING
     Route: 065
  9. FOLINA                             /00024201/ [Concomitant]
     Indication: Vitamin supplementation
     Dosage: UNK, ONGOING
     Route: 065
  10. ANASTROZOLE [Concomitant]
     Active Substance: ANASTROZOLE
     Dosage: UNK, ONGOING
     Route: 065
  11. LASIX                              /00032601/ [Concomitant]
     Dosage: UNK, ONGOING
     Route: 065
  12. CALCIUM CARBONATE [Concomitant]
     Active Substance: CALCIUM CARBONATE
     Dosage: UNK, ONGOING
     Route: 065
  13. INSULIN NOS [Concomitant]
     Active Substance: INSULIN NOS
     Dosage: UNK, ONGOING
     Route: 065
  14. ACYCLOVIR                          /00587301/ [Concomitant]
     Dosage: UNK, ONGOING
     Route: 065
  15. ALLOPURINOL [Concomitant]
     Active Substance: ALLOPURINOL
     Dosage: UNK, ONGOING
     Route: 065

REACTIONS (1)
  - Thrombocytopenia [Recovered/Resolved]

NARRATIVE: CASE EVENT DATE: 20210220
